FAERS Safety Report 8564952-0 (Version None)
Quarter: 2012Q3

REPORT INFORMATION
  Report Type: 
  Country: None (occurrence: None)
  Receive Date: 20120803
  Receipt Date: 20120724
  Transmission Date: 20120928
  Serious: Yes (Other)
  Sender: FDA-Public Use
  Company Number: US-SANOFI-AVENTIS-2012SA054095

PATIENT
  Age: 38 Year
  Sex: Male

DRUGS (2)
  1. METOCLOPRAMIDE [Concomitant]
  2. AMBIEN [Suspect]
     Route: 048

REACTIONS (2)
  - COMPLETED SUICIDE [None]
  - AGITATION [None]
